FAERS Safety Report 7002740-7 (Version None)
Quarter: 2010Q3

REPORT INFORMATION
  Report Type: 
  Country: None (occurrence: None)
  Receive Date: 20100920
  Receipt Date: 20100911
  Transmission Date: 20110219
  Serious: Yes (Other)
  Sender: FDA-Public Use
  Company Number: DE-AMGEN-KDL428913

PATIENT
  Sex: Female
  Weight: 62 kg

DRUGS (1)
  1. NPLATE [Suspect]
     Indication: IDIOPATHIC THROMBOCYTOPENIC PURPURA
     Route: 058
     Dates: start: 20100726

REACTIONS (3)
  - HAEMATOMA [None]
  - PETECHIAE [None]
  - REFUSAL OF TREATMENT BY PATIENT [None]
